FAERS Safety Report 11155337 (Version 2)
Quarter: 2015Q2

REPORT INFORMATION
  Report Type: Spontaneous
  Country: US (occurrence: US)
  Receive Date: 20150602
  Receipt Date: 20150619
  Transmission Date: 20150821
  Serious: No
  Sender: FDA-Public Use
  Company Number: US-PFIZER INC-2015180014

PATIENT
  Age: 73 Year
  Sex: Female
  Weight: 52.15 kg

DRUGS (6)
  1. BRIMONIDINE [Suspect]
     Active Substance: BRIMONIDINE\BRIMONIDINE TARTRATE
     Dosage: UNK
  2. LEVOBUNOLOL [Suspect]
     Active Substance: LEVOBUNOLOL
     Dosage: UNK
  3. ALBUTEROL. [Suspect]
     Active Substance: ALBUTEROL
     Dosage: UNK
  4. LATANOPROST. [Suspect]
     Active Substance: LATANOPROST
     Dosage: UNK
  5. DORZOLAMIDE [Suspect]
     Active Substance: DORZOLAMIDE
     Dosage: UNK
  6. TIMOLOL [Suspect]
     Active Substance: TIMOLOL
     Dosage: UNK

REACTIONS (1)
  - Drug hypersensitivity [Unknown]
